FAERS Safety Report 5157091-2 (Version None)
Quarter: 2006Q4

REPORT INFORMATION
  Report Type: 
  Country: None (occurrence: None)
  Receive Date: 20061127
  Receipt Date: 20061031
  Transmission Date: 20070319
  Serious: Yes (Life-Threatening, Hospitalization, Other)
  Sender: FDA-Public Use
  Company Number: GB-ELI_LILLY_AND_COMPANY-GB200611000026

PATIENT
  Age: 32 Year
  Sex: Male
  Weight: 82.55 kg

DRUGS (2)
  1. ZYPREXA [Suspect]
     Indication: PSYCHOTIC DISORDER
     Dosage: 5 MG, UNK
     Route: 048
     Dates: start: 20050401
  2. ZYPREXA [Suspect]
     Dosage: 10 MG, UNKNOWN
     Route: 048

REACTIONS (3)
  - DEEP VEIN THROMBOSIS [None]
  - MALAISE [None]
  - TREATMENT NONCOMPLIANCE [None]
